FAERS Safety Report 11081038 (Version 1)
Quarter: 2015Q2

REPORT INFORMATION
  Report Type: Spontaneous
  Country: US (occurrence: None)
  Receive Date: 20150430
  Receipt Date: 20150430
  Transmission Date: 20150821
  Serious: Yes (Life-Threatening)
  Sender: FDA-Public Use
  Company Number: None

PATIENT
  Age: 69 Year
  Sex: Female

DRUGS (3)
  1. GILENYA [Suspect]
     Active Substance: FINGOLIMOD HYDROCHLORIDE
     Indication: MULTIPLE SCLEROSIS
     Dates: start: 201301
  2. TEMAZEPAM. [Concomitant]
     Active Substance: TEMAZEPAM
  3. LORAZEPAM. [Concomitant]
     Active Substance: LORAZEPAM

REACTIONS (4)
  - White blood cell count decreased [None]
  - Progressive multifocal leukoencephalopathy [None]
  - Central nervous system lesion [None]
  - JC virus infection [None]

NARRATIVE: CASE EVENT DATE: 20150101
